FAERS Safety Report 9167393 (Version 1)
Quarter: 2013Q1

REPORT INFORMATION
  Report Type: Spontaneous
  Country: FR (occurrence: None)
  Receive Date: 20130304
  Receipt Date: 20130304
  Transmission Date: 20140127
  Serious: Yes (Hospitalization)
  Sender: FDA-Public Use
  Company Number: SYM-2013-00964

PATIENT
  Age: 60 Year
  Sex: Female

DRUGS (7)
  1. MONO TILDIEM [Suspect]
     Indication: PRODUCT USED FOR UNKNOWN INDICATION
     Route: 048
  2. KARDEGIC [Suspect]
     Indication: PRODUCT USED FOR UNKNOWN INDICATION
     Route: 048
  3. TAHOR [Suspect]
     Indication: DYSLIPIDAEMIA
     Route: 048
  4. EZETROL [Suspect]
     Indication: PRODUCT USED FOR UNKNOWN INDICATION
     Route: 048
  5. DUPHASTON [Suspect]
     Indication: PRODUCT USED FOR UNKNOWN INDICATION
     Route: 048
     Dates: start: 201209, end: 20121119
  6. ESTREVA [Suspect]
     Indication: PRODUCT USED FOR UNKNOWN INDICATION
     Route: 058
     Dates: start: 201209, end: 20121119
  7. NITROGLYCERIN [Concomitant]

REACTIONS (5)
  - Vision blurred [None]
  - Photophobia [None]
  - Visual acuity reduced [None]
  - Optic neuritis [None]
  - Headache [None]
